FAERS Safety Report 10204384 (Version 2)
Quarter: 2014Q2

REPORT INFORMATION
  Report Type: Spontaneous
  Country: TR (occurrence: TR)
  Receive Date: 20140529
  Receipt Date: 20140529
  Transmission Date: 20141212
  Serious: Yes (Hospitalization, Other)
  Sender: FDA-Public Use
  Company Number: TR-PFIZER INC-2003111917

PATIENT
  Age: 8 Month
  Sex: Male

DRUGS (1)
  1. AZITHROMYCIN [Suspect]
     Indication: TONSILLITIS
     Dosage: UNK
     Route: 048

REACTIONS (1)
  - Hypersensitivity vasculitis [Recovered/Resolved]
